FAERS Safety Report 20978998 (Version 4)
Quarter: 2022Q3

REPORT INFORMATION
  Report Type: Report from Study
  Country: DE (occurrence: None)
  Receive Date: 20220619
  Receipt Date: 20220715
  Transmission Date: 20221027
  Serious: Yes (Hospitalization)
  Sender: FDA-Public Use
  Company Number: DE-ROCHE-3116174

PATIENT
  Age: 54 Year
  Sex: Female
  Weight: 78 kg

DRUGS (20)
  1. OBINUTUZUMAB [Suspect]
     Active Substance: OBINUTUZUMAB
     Indication: Follicular lymphoma
     Dosage: ON 17/MAY/2022, THE PATIENT WAS RECEIVED MOST RECENT DOSE PRIOR TO AE.
     Route: 042
     Dates: start: 20211130
  2. COPANLISIB [Suspect]
     Active Substance: COPANLISIB
     Indication: Follicular lymphoma
     Dosage: ON 31/MAY/2022, THE PATIENT RECEIVED MOST RECENT DOSE OF STUDY DRUG PRIOR TO AE.
     Route: 041
     Dates: start: 20211130
  3. CIMETIDINE [Concomitant]
     Active Substance: CIMETIDINE
     Dates: start: 20211130
  4. CLEMASTINE [Concomitant]
     Active Substance: CLEMASTINE
     Dates: start: 20211130
  5. PREDNISOLONE [Concomitant]
     Active Substance: PREDNISOLONE
     Dates: start: 20211130
  6. METAMIZOLE [Concomitant]
     Active Substance: METAMIZOLE
     Dates: start: 20211130
  7. SULFAMETHOXAZOLE\TRIMETHOPRIM [Concomitant]
     Active Substance: SULFAMETHOXAZOLE\TRIMETHOPRIM
     Dates: start: 20211201
  8. ACYCLOVIR [Concomitant]
     Active Substance: ACYCLOVIR
     Dates: start: 20211201
  9. CHOLECALCIFEROL [Concomitant]
     Active Substance: CHOLECALCIFEROL
     Dates: start: 20211209
  10. INNOHEP [Concomitant]
     Active Substance: TINZAPARIN SODIUM
     Dates: start: 20211214
  11. MCP [Concomitant]
     Active Substance: METOCLOPRAMIDE HYDROCHLORIDE
     Dates: start: 20220105
  12. PANTOPRAZOLE [Concomitant]
     Active Substance: PANTOPRAZOLE
     Dates: start: 20220112
  13. IBUPROFEN [Concomitant]
     Active Substance: IBUPROFEN
     Dates: start: 20220112
  14. GLANDOMED [Concomitant]
     Dates: start: 20220223
  15. MOVICOL [Concomitant]
     Active Substance: POLYETHYLENE GLYCOL 3350\POTASSIUM CHLORIDE\SODIUM BICARBONATE\SODIUM CHLORIDE
     Dates: start: 20220419
  16. NALOXONE HYDROCHLORIDE\OXYCODONE HYDROCHLORIDE [Concomitant]
     Active Substance: NALOXONE HYDROCHLORIDE\OXYCODONE HYDROCHLORIDE
     Dates: start: 20220419
  17. PREGABALIN [Concomitant]
     Active Substance: PREGABALIN
     Dates: start: 20220419
  18. DERMOXIN [Concomitant]
     Dates: start: 20220419
  19. METHYLPREDNISOLONE [Concomitant]
     Active Substance: METHYLPREDNISOLONE
     Dates: start: 20220419
  20. METOCLOPRAMIDE [Concomitant]
     Active Substance: METOCLOPRAMIDE
     Dates: start: 20220419

REACTIONS (3)
  - Central nervous system infection [Not Recovered/Not Resolved]
  - Herpes zoster [Recovering/Resolving]
  - Neurological symptom [Recovered/Resolved]

NARRATIVE: CASE EVENT DATE: 20220414
